FAERS Safety Report 7400417-7 (Version None)
Quarter: 2011Q2

REPORT INFORMATION
  Report Type: 
  Country: None (occurrence: None)
  Receive Date: 20110407
  Receipt Date: 20110329
  Transmission Date: 20111010
  Serious: Yes (Hospitalization)
  Sender: FDA-Public Use
  Company Number: US-ASTRAZENECA-2010SE20349

PATIENT
  Age: 751 Month
  Sex: Female

DRUGS (3)
  1. NEXIUM [Suspect]
     Route: 048
     Dates: start: 20100401
  2. PREVACID [Concomitant]
  3. NEXIUM [Suspect]
     Route: 048
     Dates: start: 20080701

REACTIONS (3)
  - COLON OPERATION [None]
  - HEAD INJURY [None]
  - FALL [None]
